FAERS Safety Report 4338113-5 (Version None)
Quarter: 2004Q2

REPORT INFORMATION
  Report Type: 
  Country: None (occurrence: None)
  Receive Date: 20040413
  Receipt Date: 20040413
  Transmission Date: 20050107
  Serious: Yes (Disabling, Other)
  Sender: FDA-Public Use
  Company Number: None

PATIENT
  Sex: Male
  Weight: 104.3273 kg

DRUGS (1)
  1. KLONOPIN [Suspect]
     Indication: CONVULSION
     Dosage: 1 MG Q 5 DAILY (EVERY DAY)

REACTIONS (3)
  - ENCEPHALITIS EASTERN EQUINE [None]
  - PHARMACEUTICAL PRODUCT COMPLAINT [None]
  - STATUS EPILEPTICUS [None]
